FAERS Safety Report 24268773 (Version 1)
Quarter: 2024Q3

REPORT INFORMATION
  Report Type: Spontaneous
  Country: PT (occurrence: PT)
  Receive Date: 20240830
  Receipt Date: 20240830
  Transmission Date: 20241016
  Serious: Yes (Other)
  Sender: SEBELA
  Company Number: PT-SEBELA IRELAND LIMITED-2024SEB00059

PATIENT
  Age: 27 Year
  Sex: Female
  Weight: 56 kg

DRUGS (2)
  1. IMURAN [Suspect]
     Active Substance: AZATHIOPRINE
     Indication: Crohn^s disease
     Dosage: UNK
     Route: 048
     Dates: start: 20220806, end: 20220930
  2. ADALIMUMAB [Suspect]
     Active Substance: ADALIMUMAB
     Indication: Crohn^s disease
     Dosage: UNK, 1X/WEEK
     Route: 058
     Dates: start: 20170526, end: 20221101

REACTIONS (1)
  - Ophthalmic herpes zoster [Recovered/Resolved]

NARRATIVE: CASE EVENT DATE: 20220827
